FAERS Safety Report 7795399 (Version 2)
Quarter: 2013Q3

REPORT INFORMATION
  Report Type: Spontaneous
  Country: US (occurrence: US)
  Receive Date: 20110202
  Receipt Date: 20130930
  Transmission Date: 20140515
  Serious: Yes (Other)
  Sender: FDA-Public Use
  Company Number: US-RANBAXY-2011US-41377

PATIENT
  Age: 41 Year
  Sex: Female

DRUGS (2)
  1. METFORMIN HYDROCHLORIDE [Suspect]
     Indication: TYPE 2 DIABETES MELLITUS
     Dosage: UNK
     Route: 065
  2. ASPIRIN/ CAFFEINE [Suspect]
     Indication: PAIN
     Dosage: UNK
     Route: 065

REACTIONS (1)
  - Drug eruption [Unknown]
